FAERS Safety Report 6015069-0 (Version None)
Quarter: 2008Q4

REPORT INFORMATION
  Report Type: 
  Country: None (occurrence: None)
  Receive Date: 20081222
  Receipt Date: 20081216
  Transmission Date: 20090506
  Serious: Yes (Disabling)
  Sender: FDA-Public Use
  Company Number: JP-SP-2008-03020

PATIENT
  Age: 64 Year
  Sex: Male

DRUGS (8)
  1. IMMUCYST [Suspect]
     Indication: BLADDER CANCER
     Route: 043
     Dates: start: 20080229, end: 20080307
  2. IMMUCYST [Suspect]
     Route: 043
     Dates: start: 20080229, end: 20080307
  3. MAGNESIUM OXIDE [Concomitant]
     Dates: start: 20080418
  4. FAMOTIDINE [Concomitant]
     Dates: start: 20080314
  5. CARBAZOCHROME SODIUM SULFONATE [Concomitant]
     Dates: start: 20071102
  6. TRANEXAMIC ACID [Concomitant]
     Dates: start: 20071102
  7. LOXOPROFEN SODIUM [Concomitant]
     Dates: start: 20071019
  8. BUPRENORPHINE HYDROCHLORIDE [Concomitant]
     Dates: start: 20080711

REACTIONS (5)
  - CONTRACTED BLADDER [None]
  - HAEMATURIA [None]
  - POLLAKIURIA [None]
  - URGE INCONTINENCE [None]
  - URINE OUTPUT DECREASED [None]
